FAERS Safety Report 8247555-7 (Version None)
Quarter: 2012Q1

REPORT INFORMATION
  Report Type: 
  Country: None (occurrence: None)
  Receive Date: 20120330
  Receipt Date: 20120321
  Transmission Date: 20120608
  Serious: Yes (Death, Other)
  Sender: FDA-Public Use
  Company Number: US-BAYER-2012-029823

PATIENT
  Age: 84 Year
  Sex: Male

DRUGS (1)
  1. APROTININ [Suspect]
     Indication: AORTIC ANEURYSM REPAIR

REACTIONS (5)
  - CEREBRAL THROMBOSIS [None]
  - RENAL VESSEL DISORDER [None]
  - RENAL FAILURE ACUTE [None]
  - DISSEMINATED INTRAVASCULAR COAGULATION [None]
  - NERVOUS SYSTEM DISORDER [None]
